FAERS Safety Report 21283252 (Version 1)
Quarter: 2022Q3

REPORT INFORMATION
  Report Type: Spontaneous
  Country: EG (occurrence: EG)
  Receive Date: 20220901
  Receipt Date: 20220901
  Transmission Date: 20221027
  Serious: Yes (Death)
  Sender: FDA-Public Use
  Company Number: EG-MYLANLABS-2022M1090513

PATIENT
  Age: 50 Year
  Sex: Female

DRUGS (2)
  1. CARBOPLATIN [Suspect]
     Active Substance: CARBOPLATIN
     Indication: Gastrooesophageal cancer
     Dosage: 450 MILLIGRAM
     Route: 042
     Dates: start: 20180813
  2. FLUOROURACIL [Suspect]
     Active Substance: FLUOROURACIL
     Indication: Gastrooesophageal cancer
     Dosage: 1370 MILLIGRAM (FOR 4 DAYS)
     Route: 042
     Dates: start: 20180813

REACTIONS (3)
  - Chest pain [Fatal]
  - Myocardial necrosis marker increased [Fatal]
  - Condition aggravated [Fatal]
